FAERS Safety Report 25874343 (Version 1)
Quarter: 2025Q4

REPORT INFORMATION
  Report Type: Spontaneous
  Country: US (occurrence: None)
  Receive Date: 20251002
  Receipt Date: 20251002
  Transmission Date: 20260118
  Serious: Yes (Hospitalization)
  Sender: FDA-CTU
  Company Number: None

PATIENT
  Age: 71 Year
  Sex: Female

DRUGS (4)
  1. NUCALA [Suspect]
     Active Substance: MEPOLIZUMAB
     Indication: Chronic obstructive pulmonary disease
     Dosage: 100 MG/ML  EVERY 28 DAYS SUBCUTANEOUS?
     Route: 058
     Dates: start: 20250717
  2. ALBUTEROL [Concomitant]
     Active Substance: ALBUTEROL
  3. Trelegy Ellipta INH [Concomitant]
  4. ROFLUMILAST [Concomitant]
     Active Substance: ROFLUMILAST

REACTIONS (1)
  - Pneumonia [None]

NARRATIVE: CASE EVENT DATE: 20250930
